FAERS Safety Report 8120275-5 (Version None)
Quarter: 2012Q1

REPORT INFORMATION
  Report Type: 
  Country: None (occurrence: None)
  Receive Date: 20120207
  Receipt Date: 20120131
  Transmission Date: 20120608
  Serious: Yes (Hospitalization)
  Sender: FDA-Public Use
  Company Number: CHPA2012US002455

PATIENT

DRUGS (2)
  1. HORMONES [Concomitant]
     Dosage: UNK, UNK
  2. EXCEDRIN (MIGRAINE) [Suspect]
     Dosage: 2 DF, ONCE/SINGLE
     Route: 048
     Dates: start: 20120101, end: 20120101

REACTIONS (4)
  - AMNESIA [None]
  - WRONG DRUG ADMINISTERED [None]
  - PRESYNCOPE [None]
  - DISORIENTATION [None]
